FAERS Safety Report 16223478 (Version 2)
Quarter: 2019Q2

REPORT INFORMATION
  Report Type: Spontaneous
  Country: JP (occurrence: JP)
  Receive Date: 20190422
  Receipt Date: 20190620
  Transmission Date: 20190711
  Serious: Yes (Death, Hospitalization, Other)
  Sender: FDA-Public Use
  Company Number: JP-PFIZER INC-2019162548

PATIENT
  Age: 60 Year
  Sex: Female
  Weight: 66 kg

DRUGS (2)
  1. RHEUMATREX [Suspect]
     Active Substance: METHOTREXATE SODIUM
     Indication: RHEUMATOID ARTHRITIS
     Dosage: 4 MG, WEEKLY
     Route: 048
     Dates: start: 20020111, end: 20180927
  2. RHEUMATREX [Suspect]
     Active Substance: METHOTREXATE SODIUM
     Dosage: 4 MG, WEEKLY
     Route: 048
     Dates: start: 20190222, end: 20190328

REACTIONS (11)
  - Multiple organ dysfunction syndrome [Unknown]
  - Fall [Unknown]
  - Pancytopenia [Fatal]
  - Respiratory tract haemorrhage [Unknown]
  - Productive cough [Unknown]
  - Disseminated intravascular coagulation [Unknown]
  - Oral disorder [Unknown]
  - Altered state of consciousness [Unknown]
  - Spinal compression fracture [Unknown]
  - Femur fracture [Unknown]
  - Decreased appetite [Unknown]

NARRATIVE: CASE EVENT DATE: 200808
